FAERS Safety Report 25502242 (Version 2)
Quarter: 2025Q3

REPORT INFORMATION
  Report Type: Spontaneous
  Country: CA (occurrence: CA)
  Receive Date: 20250702
  Receipt Date: 20250728
  Transmission Date: 20251020
  Serious: Yes (Other)
  Sender: CSL BEHRING
  Company Number: CA-BEH-2025210353

PATIENT
  Age: 46 Year
  Sex: Male

DRUGS (10)
  1. PRIVIGEN [Suspect]
     Active Substance: HUMAN IMMUNOGLOBULIN G
     Indication: Bone marrow transplant
     Route: 042
     Dates: start: 20240727, end: 20240727
  2. PRIVIGEN [Suspect]
     Active Substance: HUMAN IMMUNOGLOBULIN G
     Route: 042
     Dates: start: 20240727, end: 20240727
  3. PRIVIGEN [Suspect]
     Active Substance: HUMAN IMMUNOGLOBULIN G
     Route: 065
     Dates: start: 20240730
  4. PRIVIGEN [Suspect]
     Active Substance: HUMAN IMMUNOGLOBULIN G
     Route: 065
     Dates: start: 20240731
  5. ACYCLOVIR [Concomitant]
     Active Substance: ACYCLOVIR
  6. ATOVAQUONE [Concomitant]
     Active Substance: ATOVAQUONE
  7. ENTECAVIR [Concomitant]
     Active Substance: ENTECAVIR
  8. FLUCONAZOLE [Concomitant]
     Active Substance: FLUCONAZOLE
  9. NYSTATIN [Concomitant]
     Active Substance: NYSTATIN
  10. PIPERACILLIN AND TAZOBACTAM [Concomitant]
     Active Substance: PIPERACILLIN SODIUM\TAZOBACTAM SODIUM

REACTIONS (11)
  - Cardiac arrest [Fatal]
  - Febrile nonhaemolytic transfusion reaction [Recovered/Resolved]
  - Anal incontinence [Recovered/Resolved]
  - Haemolysis [Unknown]
  - Splenic infarction [Unknown]
  - Chills [Recovered/Resolved]
  - Hyperhidrosis [Recovered/Resolved]
  - Flushing [Recovered/Resolved]
  - Splenomegaly [Unknown]
  - Body temperature increased [Unknown]
  - Heart rate increased [Unknown]

NARRATIVE: CASE EVENT DATE: 20240701
